FAERS Safety Report 23682335 (Version 3)
Quarter: 2025Q1

REPORT INFORMATION
  Report Type: Report from Study
  Country: CA (occurrence: CA)
  Receive Date: 20240328
  Receipt Date: 20250117
  Transmission Date: 20250409
  Serious: Yes (Hospitalization, Other)
  Sender: SANDOZ
  Company Number: CA-002147023-NVSC2022CA259141

PATIENT
  Sex: Male

DRUGS (3)
  1. ERELZI [Suspect]
     Active Substance: ETANERCEPT-SZZS
     Indication: Rheumatoid arthritis
     Dosage: 50 MG, QW, PRE-FILLED PEN
     Route: 058
     Dates: start: 20220406, end: 20231226
  2. ERELZI [Suspect]
     Active Substance: ETANERCEPT-SZZS
     Route: 058
  3. METHOTREXATE [Suspect]
     Active Substance: METHOTREXATE
     Indication: Product used for unknown indication
     Route: 065

REACTIONS (14)
  - Haematoma [Unknown]
  - Accident [Unknown]
  - Concussion [Unknown]
  - Head injury [Unknown]
  - Surgery [Unknown]
  - General physical health deterioration [Unknown]
  - Balance disorder [Unknown]
  - Loss of personal independence in daily activities [Unknown]
  - Adverse event [Unknown]
  - Language disorder [Unknown]
  - Finger deformity [Unknown]
  - Dizziness [Unknown]
  - Nausea [Unknown]
  - Product dose omission issue [Unknown]
